FAERS Safety Report 10217551 (Version 2)
Quarter: 2015Q2

REPORT INFORMATION
  Report Type: Spontaneous
  Country: MX (occurrence: MX)
  Receive Date: 20140604
  Receipt Date: 20150626
  Transmission Date: 20150821
  Serious: Yes (Death)
  Sender: FDA-Public Use
  Company Number: MX-UCBSA-123173

PATIENT
  Age: 3 Year
  Sex: Female
  Weight: 9 kg

DRUGS (4)
  1. FRISIUM [Concomitant]
     Active Substance: CLOBAZAM
     Indication: EPILEPSY
     Dosage: 10 MG, ONCE DAILY (QD)
     Route: 048
     Dates: end: 20140429
  2. VALPROIC ACID. [Concomitant]
     Active Substance: VALPROIC ACID
     Indication: EPILEPSY
     Dosage: 1.5 MG, ONCE DAILY (QD)
     Route: 048
     Dates: end: 20140428
  3. VIMPAT [Suspect]
     Active Substance: LACOSAMIDE
     Indication: EPILEPSY
     Dosage: 50 MG, 3X/DAY (TID)
     Route: 048
     Dates: start: 20140425, end: 20140429
  4. KEPPRA [Concomitant]
     Active Substance: LEVETIRACETAM
     Indication: EPILEPSY
     Dosage: 150 ML, ONCE DAILY (QD)
     Route: 048
     Dates: start: 20140312, end: 20140426

REACTIONS (2)
  - Death [Fatal]
  - Inappropriate schedule of drug administration [Unknown]

NARRATIVE: CASE EVENT DATE: 20140425
